FAERS Safety Report 7287463-1 (Version None)
Quarter: 2011Q1

REPORT INFORMATION
  Report Type: 
  Country: None (occurrence: None)
  Receive Date: 20110211
  Receipt Date: 20110205
  Transmission Date: 20110831
  Serious: Yes (Hospitalization, Other)
  Sender: FDA-Public Use
  Company Number: US-JNJFOC-20110202497

PATIENT
  Sex: Male

DRUGS (1)
  1. DURAGESIC-50 [Suspect]
     Indication: BACK PAIN
     Dosage: 100 UG/HR  AND 50 UG/HR
     Route: 062

REACTIONS (5)
  - PULMONARY MASS [None]
  - FALL [None]
  - DYSPNOEA [None]
  - MUSCULOSKELETAL DISORDER [None]
  - WRONG TECHNIQUE IN DRUG USAGE PROCESS [None]
